FAERS Safety Report 19074907 (Version 1)
Quarter: 2021Q1

REPORT INFORMATION
  Report Type: Spontaneous
  Country: US (occurrence: US)
  Receive Date: 20210330
  Receipt Date: 20210330
  Transmission Date: 20210420
  Serious: No
  Sender: FDA-Public Use
  Company Number: US-ROCHE-2627703

PATIENT
  Sex: Male

DRUGS (1)
  1. ERIVEDGE [Suspect]
     Active Substance: VISMODEGIB
     Indication: SKIN CANCER
     Dosage: 150 MG;EVERY OTHER DAY, ONGOING: YES
     Route: 048
     Dates: start: 20200211

REACTIONS (2)
  - Ocular hyperaemia [Unknown]
  - Neuropathy peripheral [Unknown]
